FAERS Safety Report 7963825-1 (Version None)
Quarter: 2011Q4

REPORT INFORMATION
  Report Type: 
  Country: None (occurrence: None)
  Receive Date: 20111208
  Receipt Date: 20111205
  Transmission Date: 20120403
  Serious: Yes (Hospitalization, Other)
  Sender: FDA-Public Use
  Company Number: US-BAYER-2011-116385

PATIENT
  Age: 45 Year
  Sex: Female

DRUGS (3)
  1. BETASERON [Suspect]
     Indication: MULTIPLE SCLEROSIS
     Dosage: UNK
     Dates: start: 20000101, end: 20080101
  2. AVONEX [Concomitant]
     Indication: MULTIPLE SCLEROSIS
     Dosage: 30 MCG/24HR, OW
     Dates: start: 19960101, end: 19980101
  3. AVONEX [Concomitant]
     Dosage: 30 MCG/24HR, OW
     Dates: start: 20080101

REACTIONS (1)
  - BREAST CANCER FEMALE [None]
